FAERS Safety Report 26116617 (Version 1)
Quarter: 2025Q4

REPORT INFORMATION
  Report Type: Spontaneous
  Country: EU (occurrence: EU)
  Receive Date: 20251203
  Receipt Date: 20251203
  Transmission Date: 20260118
  Serious: Yes (Other)
  Sender: ACCORD
  Company Number: EU-MLMSERVICE-20251117-PI716438-00080-2

PATIENT
  Age: 6 Decade
  Sex: Female

DRUGS (1)
  1. CARBIDOPA\LEVODOPA [Suspect]
     Active Substance: CARBIDOPA\LEVODOPA
     Indication: Parkinson^s disease
     Dosage: 50 MG

REACTIONS (2)
  - Dystonia [Unknown]
  - Paradoxical drug reaction [Unknown]
